FAERS Safety Report 6905221-1 (Version None)
Quarter: 2010Q3

REPORT INFORMATION
  Report Type: 
  Country: None (occurrence: None)
  Receive Date: 20100802
  Receipt Date: 20100721
  Transmission Date: 20110219
  Serious: Yes (Hospitalization, Other)
  Sender: FDA-Public Use
  Company Number: 2009EN000047

PATIENT
  Age: 13 Year
  Sex: Female
  Weight: 65.3 kg

DRUGS (12)
  1. ONCASPAR [Suspect]
     Indication: ACUTE LYMPHOCYTIC LEUKAEMIA
     Dosage: 4750 IU; X1; IV, 3750 IU; X1; IV
     Route: 042
     Dates: start: 20090202, end: 20090202
  2. ONCASPAR [Suspect]
     Indication: ACUTE LYMPHOCYTIC LEUKAEMIA
     Dosage: 4750 IU; X1; IV, 3750 IU; X1; IV
     Route: 042
     Dates: start: 20090429, end: 20090429
  3. PREDNISONE [Suspect]
     Indication: ACUTE LYMPHOCYTIC LEUKAEMIA
     Dosage: 3360 MG; BID; PO
     Route: 048
     Dates: start: 20090130
  4. DAUNORUBICIN HCL [Suspect]
     Indication: ACUTE LYMPHOCYTIC LEUKAEMIA
     Dosage: 160 MG; QW; IV
     Route: 042
     Dates: start: 20090130, end: 20090220
  5. METHOTREXATE [Suspect]
     Indication: ACUTE LYMPHOCYTIC LEUKAEMIA
     Dosage: 30 MG; ; INTH, 60 MG; ; INTH
     Route: 037
     Dates: start: 20090206, end: 20090227
  6. METHOTREXATE [Suspect]
     Indication: ACUTE LYMPHOCYTIC LEUKAEMIA
     Dosage: 30 MG; ; INTH, 60 MG; ; INTH
     Route: 037
     Dates: end: 20090401
  7. CYTARABINE [Suspect]
     Indication: ACUTE LYMPHOCYTIC LEUKAEMIA
     Dosage: 70 MG; X1; INTH, 2080 MG; ; IV
     Dates: start: 20090130, end: 20090130
  8. CYTARABINE [Suspect]
     Indication: ACUTE LYMPHOCYTIC LEUKAEMIA
     Dosage: 70 MG; X1; INTH, 2080 MG; ; IV
     Dates: end: 20090425
  9. VINCRISTINE [Suspect]
     Indication: ACUTE LYMPHOCYTIC LEUKAEMIA
     Dosage: 7.9 MG; ; IV, 8 MG; ; IV
     Route: 042
     Dates: start: 20090130, end: 20090220
  10. VINCRISTINE [Suspect]
     Indication: ACUTE LYMPHOCYTIC LEUKAEMIA
     Dosage: 7.9 MG; ; IV, 8 MG; ; IV
     Route: 042
     Dates: end: 20090509
  11. MERCAPTOPURINE [Suspect]
     Indication: ACUTE LYMPHOCYTIC LEUKAEMIA
     Dosage: 2825 MG; QD; PO
     Route: 048
     Dates: end: 20090428
  12. CYCLOPHOSPHAMIDE [Suspect]
     Indication: ACUTE LYMPHOCYTIC LEUKAEMIA
     Dosage: 3420 MG; QM; IV
     Route: 042
     Dates: end: 20090415

REACTIONS (13)
  - ABDOMINAL PAIN UPPER [None]
  - ASTHENIA [None]
  - FEBRILE NEUTROPENIA [None]
  - HYPERBILIRUBINAEMIA [None]
  - HYPERCHOLESTEROLAEMIA [None]
  - HYPERGLYCAEMIA [None]
  - HYPERTRIGLYCERIDAEMIA [None]
  - HYPOGLYCAEMIA [None]
  - HYPOPHAGIA [None]
  - HYPOTENSION [None]
  - MUCOSAL INFLAMMATION [None]
  - SEPSIS [None]
  - STAPHYLOCOCCAL SEPSIS [None]
